FAERS Safety Report 9869417 (Version 2)
Quarter: 2014Q2

REPORT INFORMATION
  Report Type: Spontaneous
  Country: US (occurrence: US)
  Receive Date: 20140205
  Receipt Date: 20140527
  Transmission Date: 20141212
  Serious: Yes (Hospitalization, Other)
  Sender: FDA-Public Use
  Company Number: US-009507513-1401USA011394

PATIENT
  Sex: Male

DRUGS (2)
  1. PROSCAR [Suspect]
     Indication: BENIGN PROSTATIC HYPERPLASIA
     Dosage: 5 MG, QD
     Route: 048
     Dates: start: 20100805, end: 201010
  2. FINASTERIDE [Suspect]
     Indication: BENIGN PROSTATIC HYPERPLASIA
     Dosage: 5 MG, QD
     Route: 048
     Dates: start: 20100805, end: 201009

REACTIONS (19)
  - Pulmonary embolism [Unknown]
  - Pneumonia [Unknown]
  - Androgen deficiency [Unknown]
  - Penile size reduced [Unknown]
  - Hypogonadism [Not Recovered/Not Resolved]
  - Groin pain [Unknown]
  - Endocrine disorder [Unknown]
  - Nocturia [Recovered/Resolved]
  - Deep vein thrombosis [Unknown]
  - Hypertension [Unknown]
  - Anxiety [Unknown]
  - Nephrolithiasis [Unknown]
  - Vena cava filter insertion [Unknown]
  - Turbinectomy [Unknown]
  - Sexual dysfunction [Not Recovered/Not Resolved]
  - Erectile dysfunction [Not Recovered/Not Resolved]
  - Libido decreased [Not Recovered/Not Resolved]
  - Semen volume decreased [Unknown]
  - Gynaecomastia [Unknown]
